FAERS Safety Report 4887657-6 (Version None)
Quarter: 2006Q1

REPORT INFORMATION
  Report Type: 
  Country: None (occurrence: None)
  Receive Date: 20060119
  Receipt Date: 20060119
  Transmission Date: 20060701
  Serious: Yes (Hospitalization)
  Sender: FDA-Public Use
  Company Number: None

PATIENT
  Age: 71 Year
  Sex: Female
  Weight: 57.2 kg

DRUGS (2)
  1. BEVACIZUMAB [Suspect]
     Indication: MESOTHELIOMA
     Dosage: 858 MG ., QD/DAYS IV
     Route: 042
     Dates: start: 20060104
  2. TARCEVA [Suspect]
     Indication: MESOTHELIOMA
     Dosage: 150 MG Q DAY PO
     Route: 048
     Dates: start: 20060115

REACTIONS (7)
  - ASTHENIA [None]
  - CHEST PAIN [None]
  - DEHYDRATION [None]
  - GASTROINTESTINAL HAEMORRHAGE [None]
  - HAEMOGLOBIN DECREASED [None]
  - OEDEMA PERIPHERAL [None]
  - THROMBOSIS [None]
